FAERS Safety Report 10100301 (Version 1)
Quarter: 2014Q2

REPORT INFORMATION
  Report Type: Spontaneous
  Country: US (occurrence: US)
  Receive Date: 20140423
  Receipt Date: 20140423
  Transmission Date: 20141212
  Serious: No
  Sender: FDA-Public Use
  Company Number: US-ENDO PHARMACEUTICALS INC.-CLON20140003

PATIENT
  Sex: Female
  Weight: 74.91 kg

DRUGS (2)
  1. CLONIDINE HCL TABLETS 0.1MG [Suspect]
     Indication: HYPERTENSION
     Dosage: 0.05-0.1 MG
     Route: 048
  2. METOPROLOL [Suspect]
     Indication: HYPERTENSION
     Route: 048

REACTIONS (2)
  - Malaise [Unknown]
  - Drug ineffective [Unknown]
